FAERS Safety Report 7001833-8 (Version None)
Quarter: 2010Q3

REPORT INFORMATION
  Report Type: 
  Country: None (occurrence: None)
  Receive Date: 20100920
  Receipt Date: 20100720
  Transmission Date: 20110219
  Serious: No
  Sender: FDA-Public Use
  Company Number: US-ASTRAZENECA-2010SE34113

PATIENT
  Age: 41 Year
  Sex: Male
  Weight: 88.5 kg

DRUGS (3)
  1. SEROQUEL XR [Suspect]
     Indication: MOOD SWINGS
     Route: 048
  2. SEROQUEL XR [Suspect]
     Indication: ANXIETY
     Route: 048
  3. SEROQUEL XR [Suspect]
     Indication: PANIC ATTACK
     Route: 048

REACTIONS (7)
  - ARTHROPATHY [None]
  - ASTHMA [None]
  - DRUG DOSE OMISSION [None]
  - DYSPNOEA [None]
  - FATIGUE [None]
  - MOOD ALTERED [None]
  - VISION BLURRED [None]
